FAERS Safety Report 25261724 (Version 1)
Quarter: 2025Q2

REPORT INFORMATION
  Report Type: Spontaneous
  Country: US (occurrence: US)
  Receive Date: 20250502
  Receipt Date: 20250502
  Transmission Date: 20250717
  Serious: No
  Sender: TARO
  Company Number: US-TARO PHARMACEUTICALS USA INC.-2025TAR01271

PATIENT

DRUGS (3)
  1. TRETINOIN [Suspect]
     Active Substance: TRETINOIN
     Indication: Chloasma
     Dosage: UNK, DAILY, ON FACE
     Route: 061
     Dates: start: 202501
  2. TRETINOIN [Suspect]
     Active Substance: TRETINOIN
     Dosage: UNK, TWICE WEEKLY, ON FACE
     Route: 061
     Dates: start: 202501
  3. CLONAZEPAM [Concomitant]
     Active Substance: CLONAZEPAM
     Indication: Product used for unknown indication
     Route: 065

REACTIONS (2)
  - Skin exfoliation [Not Recovered/Not Resolved]
  - Extra dose administered [Unknown]
